FAERS Safety Report 5833159-X (Version None)
Quarter: 2008Q3

REPORT INFORMATION
  Report Type: 
  Country: None (occurrence: None)
  Receive Date: 20080805
  Receipt Date: 20080729
  Transmission Date: 20090109
  Serious: Yes (Life-Threatening, Hospitalization)
  Sender: FDA-Public Use
  Company Number: DE-ELI_LILLY_AND_COMPANY-DE200804005681

PATIENT
  Sex: Male

DRUGS (4)
  1. ZYPREXA [Suspect]
     Dosage: UNK, UNK
     Route: 048
     Dates: end: 20060101
  2. CITALOPRAM HYDROBROMIDE [Concomitant]
     Dosage: 20 MG, UNK
  3. RISPERDAL [Concomitant]
     Dosage: 0.5 MG, EACH EVENING
  4. ZOPICLON [Concomitant]
     Indication: INSOMNIA
     Dosage: 1 D/F, AS NEEDED

REACTIONS (4)
  - INTESTINAL STRANGULATION [None]
  - PERITONEAL ADHESIONS [None]
  - PERITONITIS [None]
  - POST PROCEDURAL SEPSIS [None]
